FAERS Safety Report 6306235-5 (Version None)
Quarter: 2009Q3

REPORT INFORMATION
  Report Type: 
  Country: None (occurrence: None)
  Receive Date: 20090812
  Receipt Date: 20090803
  Transmission Date: 20100115
  Serious: Yes (Other)
  Sender: FDA-Public Use
  Company Number: ZA-ASTRAZENECA-2009SE07226

PATIENT
  Age: 24421 Day
  Sex: Male

DRUGS (5)
  1. CRESTOR [Suspect]
     Indication: DIABETES MELLITUS
     Route: 048
     Dates: start: 20090421
  2. LANTUS LA [Concomitant]
  3. GLUCOPHAGE [Concomitant]
  4. DIAGLUCIDE [Concomitant]
  5. PREXUM PLUS [Concomitant]

REACTIONS (1)
  - HYPOGLYCAEMIA [None]
